FAERS Safety Report 11273927 (Version 1)
Quarter: 2015Q3

REPORT INFORMATION
  Report Type: Spontaneous
  Country: US (occurrence: US)
  Receive Date: 20150715
  Receipt Date: 20150715
  Transmission Date: 20151125
  Serious: No
  Sender: FDA-Public Use
  Company Number: US-PFIZER INC-2015231114

PATIENT
  Age: 85 Year
  Sex: Female
  Weight: 53.52 kg

DRUGS (2)
  1. IBRANCE [Suspect]
     Active Substance: PALBOCICLIB
     Dosage: 125 MG, 1X/DAY (21 DAYS ON AND 7 DAYS OFF)
     Dates: start: 201504
  2. FEMARA [Concomitant]
     Active Substance: LETROZOLE
     Dosage: 2.5 MG, DAILY

REACTIONS (2)
  - Skin exfoliation [Unknown]
  - Hyperkeratosis [Unknown]
